FAERS Safety Report 8067796-1 (Version None)
Quarter: 2012Q1

REPORT INFORMATION
  Report Type: 
  Country: None (occurrence: None)
  Receive Date: 20120124
  Receipt Date: 20120117
  Transmission Date: 20120608
  Serious: Yes (Other)
  Sender: FDA-Public Use
  Company Number: PHHY2012NL004260

PATIENT
  Sex: Female

DRUGS (4)
  1. OMEPRAZOLE [Suspect]
     Indication: NASOPHARYNGITIS
     Dosage: 40 MG, UNK
  2. DICLOFENAC SODIUM [Suspect]
     Indication: NASOPHARYNGITIS
     Dosage: 50 MG, UNK
  3. NAPROXEN [Suspect]
     Indication: NASOPHARYNGITIS
     Dosage: 250 MG, TID
  4. DOXYCYCLINE [Suspect]
     Indication: NASOPHARYNGITIS
     Dosage: 100 MG, 1DD1 (FIRST DAY 2 TABLETS AFTER THAT 1DD1)

REACTIONS (1)
  - SWOLLEN TONGUE [None]
